FAERS Safety Report 11889378 (Version 2)
Quarter: 2016Q1

REPORT INFORMATION
  Report Type: Other
  Country: IT (occurrence: IT)
  Receive Date: 20160105
  Receipt Date: 20160108
  Transmission Date: 20160526
  Serious: Yes (Hospitalization)
  Sender: FDA-Public Use
  Company Number: IT-TAKEDA-2016TEU000030

PATIENT
  Age: 59 Year
  Sex: Male
  Weight: 130 kg

DRUGS (8)
  1. METFORMIN, GLIBENCLAMIDE [Suspect]
     Active Substance: GLYBURIDE\METFORMIN
     Indication: TYPE 2 DIABETES MELLITUS
     Dosage: 805 MG, QD
     Route: 048
     Dates: start: 20140101, end: 20140216
  2. LASIX [Concomitant]
     Active Substance: FUROSEMIDE
     Dosage: 125 MG, UNK
  3. ZYLORIC [Concomitant]
     Active Substance: ALLOPURINOL
     Dosage: 150 MG, UNK
  4. MEPRAL                             /00661201/ [Concomitant]
     Dosage: 20 MG, UNK
  5. CARDIOASPIRIN [Concomitant]
     Active Substance: ASPIRIN
     Dosage: 100 MG, UNK
  6. SIMESTAT [Concomitant]
     Active Substance: ROSUVASTATIN CALCIUM
     Dosage: 5 MG, UNK
  7. ACTOS [Suspect]
     Active Substance: PIOGLITAZONE HYDROCHLORIDE
     Indication: TYPE 2 DIABETES MELLITUS
     Dosage: 30 MG, QD
     Route: 048
     Dates: start: 20140101, end: 20140216
  8. CARDICOR [Concomitant]
     Active Substance: BISOPROLOL
     Dosage: 1.25 MG, UNK

REACTIONS (1)
  - Hypoglycaemia [Recovering/Resolving]

NARRATIVE: CASE EVENT DATE: 20140216
